FAERS Safety Report 8516745 (Version 4)
Quarter: 2013Q1

REPORT INFORMATION
  Report Type: Spontaneous
  Country: CA (occurrence: None)
  Receive Date: 20120402
  Receipt Date: 20121217
  Transmission Date: 20140127
  Serious: Yes (Other)
  Sender: FDA-Public Use
  Company Number: 2012031739

PATIENT
  Age: 69 Year
  Sex: Female

DRUGS (7)
  1. PRIVIGEN [Suspect]
     Indication: GUILLAIN-BARRE SYNDROME
     Dosage: 20 G QD, RATE STARTED AT 60 ENDED BETWEEN 150-180 ML/HR, NI, INTRAVENOUS  (NOT OTHERWISE SPECIFIED)
     Route: 042
     Dates: start: 20120217, end: 20120222
  2. HYDROCORTISONE [Concomitant]
  3. SENNOSIDE (SENNOSIDE A+B CALCIUM) [Concomitant]
  4. COLACE (DOCUSATE SODIUM) [Concomitant]
  5. NORVASC [Concomitant]
  6. MORPHINE SULFATE [Concomitant]
  7. CELEXA (CITALOPRAM HYDROBROMIDE) [Concomitant]

REACTIONS (5)
  - Haemolysis [None]
  - Haemoglobin decreased [None]
  - Hypertension [None]
  - Blood lactate dehydrogenase increased [None]
  - Haptoglobin decreased [None]
